FAERS Safety Report 4524478-8 (Version None)
Quarter: 2004Q4

REPORT INFORMATION
  Report Type: 
  Country: None (occurrence: None)
  Receive Date: 20041117
  Receipt Date: 20031112
  Transmission Date: 20050328
  Serious: Yes (Hospitalization)
  Sender: FDA-Public Use
  Company Number: US-JNJFOC-20030802128

PATIENT
  Age: 73 Year
  Sex: Female
  Weight: 60.782 kg

DRUGS (5)
  1. LEVAQUIN [Suspect]
     Indication: PHARYNGITIS BACTERIAL
     Dosage: 500 MG, 1 IN 1 DAY, ORAL
     Route: 048
  2. LIPITOR [Concomitant]
  3. TEGRETOL [Concomitant]
  4. CORGARD [Concomitant]
  5. OGEN [Concomitant]

REACTIONS (3)
  - ASTHENIA [None]
  - NAUSEA [None]
  - VOMITING [None]
